FAERS Safety Report 7275134-7 (Version None)
Quarter: 2011Q1

REPORT INFORMATION
  Report Type: 
  Country: None (occurrence: None)
  Receive Date: 20110204
  Receipt Date: 20110124
  Transmission Date: 20110831
  Serious: Yes (Other)
  Sender: FDA-Public Use
  Company Number: PHHY2011US05203

PATIENT
  Sex: Female

DRUGS (3)
  1. CALCIUM D [Concomitant]
  2. MULTI-VITAMINS [Concomitant]
  3. RECLAST [Suspect]

REACTIONS (1)
  - BLOOD CALCIUM INCREASED [None]
